FAERS Safety Report 19153418 (Version 2)
Quarter: 2021Q2

REPORT INFORMATION
  Report Type: Spontaneous
  Country: AT (occurrence: AT)
  Receive Date: 20210419
  Receipt Date: 20210525
  Transmission Date: 20210717
  Serious: Yes (Disabling)
  Sender: FDA-Public Use
  Company Number: NVSC2021AT082619

PATIENT
  Age: 74 Year
  Sex: Female
  Weight: 75 kg

DRUGS (2)
  1. COSENTYX [Suspect]
     Active Substance: SECUKINUMAB
     Indication: PSORIATIC ARTHROPATHY
     Dosage: UNK
     Route: 058
     Dates: start: 201803
  2. ACLASTA [Suspect]
     Active Substance: ZOLEDRONIC ACID
     Indication: OSTEOPOROSIS
     Dosage: UNK
     Route: 042

REACTIONS (5)
  - Myxoedema [Not Recovered/Not Resolved]
  - Borrelia test positive [Unknown]
  - Skin induration [Not Recovered/Not Resolved]
  - Scleroedema [Not Recovered/Not Resolved]
  - Morphoea [Unknown]

NARRATIVE: CASE EVENT DATE: 20201202
